FAERS Safety Report 9051469 (Version 1)
Quarter: 2013Q1

REPORT INFORMATION
  Report Type: Spontaneous
  Country: US (occurrence: US)
  Receive Date: 20130206
  Receipt Date: 20130206
  Transmission Date: 20140127
  Serious: No
  Sender: FDA-Public Use
  Company Number: US-ALLERGAN-1211590US

PATIENT
  Sex: Female

DRUGS (2)
  1. RESTASIS? [Suspect]
     Indication: DRY EYE
     Dosage: 2 GTT, BID
     Route: 047
     Dates: start: 20120716
  2. REFRESH OPTIVE [Concomitant]
     Indication: EYE IRRITATION
     Dosage: 2 GTT, PRN
     Route: 047

REACTIONS (3)
  - Foreign body sensation in eyes [Not Recovered/Not Resolved]
  - Eye pain [Not Recovered/Not Resolved]
  - Dry eye [Not Recovered/Not Resolved]
